FAERS Safety Report 6200659-2 (Version None)
Quarter: 2009Q2

REPORT INFORMATION
  Report Type: 
  Country: None (occurrence: None)
  Receive Date: 20090522
  Receipt Date: 20090515
  Transmission Date: 20091009
  Serious: Yes (Death, Life-Threatening, Hospitalization)
  Sender: FDA-Public Use
  Company Number: FR-AMGEN-UK342301

PATIENT
  Age: 73 Year
  Sex: Male
  Weight: 98 kg

DRUGS (3)
  1. VECTIBIX [Suspect]
     Indication: COLORECTAL CANCER
     Route: 042
     Dates: start: 20090303, end: 20090331
  2. PREVISCAN [Concomitant]
     Route: 065
  3. UNSPECIFIED PAIN MEDICATION [Concomitant]

REACTIONS (2)
  - CARDIOPULMONARY FAILURE [None]
  - RESPIRATORY DISTRESS [None]
